FAERS Safety Report 8138679-3 (Version None)
Quarter: 2012Q1

REPORT INFORMATION
  Report Type: 
  Country: None (occurrence: None)
  Receive Date: 20120215
  Receipt Date: 20120203
  Transmission Date: 20120608
  Serious: Yes (Hospitalization)
  Sender: FDA-Public Use
  Company Number: GB-ELI_LILLY_AND_COMPANY-GB201111006651

PATIENT
  Sex: Female
  Weight: 90.45 kg

DRUGS (8)
  1. ISOSORBIDE MONONITRATE [Concomitant]
     Dosage: UNK
  2. ATORVASTATIN [Concomitant]
     Dosage: 40 MG, UNK
  3. ASPIRIN [Concomitant]
     Dosage: 75 MG, UNK
  4. BYDUREON [Suspect]
     Indication: TYPE 2 DIABETES MELLITUS
     Dosage: 2 MG, WEEKLY (1/W)
     Route: 058
     Dates: start: 20110928, end: 20111115
  5. BETALOC SA [Concomitant]
     Dosage: UNK
  6. POTASSIUM CHLORIDE [Concomitant]
     Dosage: UNK
  7. AMLODIPINE [Concomitant]
     Dosage: UNK
  8. ENALAPRIL MALEATE [Concomitant]
     Dosage: UNK

REACTIONS (7)
  - RED BLOOD CELL SEDIMENTATION RATE INCREASED [None]
  - PAIN IN EXTREMITY [None]
  - INJECTION SITE PRURITUS [None]
  - INTENTIONAL DRUG MISUSE [None]
  - TENDERNESS [None]
  - C-REACTIVE PROTEIN INCREASED [None]
  - SWELLING [None]
